FAERS Safety Report 13029104 (Version 1)
Quarter: 2016Q4

REPORT INFORMATION
  Report Type: Spontaneous
  Country: US (occurrence: US)
  Receive Date: 20161215
  Receipt Date: 20161215
  Transmission Date: 20170207
  Serious: No
  Sender: FDA-Public Use
  Company Number: US-AUROBINDO-AUR-APU-2016-08863

PATIENT
  Age: 61 Year
  Sex: Female

DRUGS (3)
  1. MIRTAZAPINE TABLETS 30 MG (AMIDE) (MIRTAZAPINE) [Suspect]
     Active Substance: MIRTAZAPINE
     Indication: ANXIETY
     Dosage: 1 DF, DAILY
     Dates: start: 20160607
  2. MIRTAZAPINE TABLETS 30 MG (AMIDE) (MIRTAZAPINE) [Suspect]
     Active Substance: MIRTAZAPINE
     Indication: DEPRESSION
  3. PROZAC [Concomitant]
     Active Substance: FLUOXETINE HYDROCHLORIDE
     Indication: PRODUCT USED FOR UNKNOWN INDICATION
     Dosage: 60 MG, UNK
     Route: 065

REACTIONS (3)
  - Feeling abnormal [Not Recovered/Not Resolved]
  - Drug ineffective [Not Recovered/Not Resolved]
  - Agitation [Not Recovered/Not Resolved]
